FAERS Safety Report 18720969 (Version 3)
Quarter: 2021Q1

REPORT INFORMATION
  Report Type: Report from Study
  Country: MX (occurrence: MX)
  Receive Date: 20210108
  Receipt Date: 20210220
  Transmission Date: 20210419
  Serious: Yes (Other)
  Sender: FDA-Public Use
  Company Number: MX-TAKEDA-MX202013827

PATIENT
  Age: 2 Year
  Sex: Male
  Weight: 16 kg

DRUGS (6)
  1. IDURSULFASE [Suspect]
     Active Substance: IDURSULFASE
     Dosage: 6 MG/3 ML, 1X/WEEK
     Route: 042
     Dates: start: 20200311
  2. IDURSULFASE [Suspect]
     Active Substance: IDURSULFASE
     Indication: MUCOPOLYSACCHARIDOSIS II
     Dosage: 1 DOSAGE FORM (6MG/ 3ML), 1X/WEEK
     Route: 042
     Dates: start: 20200311
  3. LORATADINE. [Concomitant]
     Active Substance: LORATADINE
     Indication: PRODUCT USED FOR UNKNOWN INDICATION
     Dosage: 3 MILLILITER, 1X/WEEK
     Route: 048
  4. RISPERIDONE. [Concomitant]
     Active Substance: RISPERIDONE
     Indication: PRODUCT USED FOR UNKNOWN INDICATION
     Dosage: 6 GTT DROPS
     Route: 048
  5. IDURSULFASE [Suspect]
     Active Substance: IDURSULFASE
     Dosage: 1 DOSAGE FORM, 1X/WEEK
     Route: 042
     Dates: start: 20200408
  6. IDURSULFASE [Suspect]
     Active Substance: IDURSULFASE
     Dosage: 6 MILLIGRAM, 1/WEEK
     Route: 042
     Dates: start: 20200311

REACTIONS (13)
  - Influenza [Unknown]
  - Product dose omission issue [Not Recovered/Not Resolved]
  - Mouth swelling [Recovered/Resolved]
  - Catheter site swelling [Recovered/Resolved]
  - Crying [Recovered/Resolved]
  - Eye swelling [Recovered/Resolved]
  - Lip swelling [Recovered/Resolved]
  - Lip discolouration [Recovered/Resolved]
  - Seizure [Recovered/Resolved]
  - Catheter site extravasation [Recovered/Resolved]
  - Irritability [Recovered/Resolved]
  - Catheter site erythema [Recovered/Resolved]
  - Inappropriate schedule of product administration [Not Recovered/Not Resolved]

NARRATIVE: CASE EVENT DATE: 20200422
